FAERS Safety Report 25672297 (Version 1)
Quarter: 2025Q3

REPORT INFORMATION
  Report Type: Spontaneous
  Country: AU (occurrence: AU)
  Receive Date: 20250812
  Receipt Date: 20250812
  Transmission Date: 20251021
  Serious: Yes (Hospitalization)
  Sender: GE HEALTHCARE
  Company Number: AU-GE HEALTHCARE-2025CSU010690

PATIENT
  Age: 26 Year
  Weight: 54 kg

DRUGS (1)
  1. CLARISCAN [Suspect]
     Active Substance: GADOTERATE MEGLUMINE
     Indication: Magnetic resonance cholangiopancreatography
     Route: 042
     Dates: start: 20250730, end: 20250730

REACTIONS (3)
  - Pain [Recovering/Resolving]
  - Dyspnoea [Recovering/Resolving]
  - Pruritus [Recovering/Resolving]

NARRATIVE: CASE EVENT DATE: 20250730
